FAERS Safety Report 24756990 (Version 3)
Quarter: 2025Q4

REPORT INFORMATION
  Report Type: Spontaneous
  Country: US (occurrence: US)
  Receive Date: 20241220
  Receipt Date: 20251125
  Transmission Date: 20260118
  Serious: No
  Sender: TELIX PHARMACEUTICALS
  Company Number: US-TLX-2024000219

PATIENT
  Age: 80 Year
  Sex: Male
  Weight: 76.66 kg

DRUGS (1)
  1. ILLUCCIX [Suspect]
     Active Substance: GALLIUM GA-68 GOZETOTIDE
     Indication: Imaging procedure
     Dosage: 5.1MCI DISPENSED DOSE
     Route: 040
     Dates: start: 20241206, end: 20241206

REACTIONS (3)
  - Dizziness [Recovered/Resolved]
  - Dizziness [Recovered/Resolved]
  - Diarrhoea [Recovered/Resolved]

NARRATIVE: CASE EVENT DATE: 20241206
